FAERS Safety Report 9207936 (Version 1)
Quarter: 2013Q2

REPORT INFORMATION
  Report Type: Spontaneous
  Country: FR (occurrence: FR)
  Receive Date: 20130403
  Receipt Date: 20130403
  Transmission Date: 20140414
  Serious: Yes (Other)
  Sender: FDA-Public Use
  Company Number: FR-ELI_LILLY_AND_COMPANY-FR201303007810

PATIENT
  Age: 68 Year
  Sex: Male

DRUGS (1)
  1. GEMZAR [Suspect]
     Indication: BILE DUCT CANCER
     Dosage: UNK, UNKNOWN
     Route: 042
     Dates: start: 20121025, end: 20121025

REACTIONS (5)
  - Toxic skin eruption [Recovered/Resolved]
  - Oxygen saturation decreased [Recovered/Resolved]
  - Pyrexia [Recovered/Resolved]
  - Lung disorder [Unknown]
  - Rales [Unknown]
